FAERS Safety Report 9179945 (Version 3)
Quarter: 2013Q4

REPORT INFORMATION
  Report Type: Spontaneous
  Country: GB (occurrence: GB)
  Receive Date: 20130321
  Receipt Date: 20131009
  Transmission Date: 20140711
  Serious: Yes (Other)
  Sender: FDA-Public Use
  Company Number: GB-VERTEX PHARMACEUTICALS INC.-2013-003948

PATIENT
  Age: 57 Year
  Sex: Male
  Weight: 70 kg

DRUGS (11)
  1. INCIVO [Suspect]
     Indication: HEPATITIS C
     Dosage: 750 MG, TID
     Route: 048
     Dates: start: 20121127
  2. RIBAVIRIN [Suspect]
     Indication: HEPATITIS C
     Dosage: DOSAGE FORM: UNSPECIFIED
     Route: 065
     Dates: start: 20121127
  3. RIBAVIRIN [Suspect]
     Dosage: 800 MG, UNK
     Route: 065
  4. RIBAVIRIN [Suspect]
     Dosage: 600 MG, UNK
     Route: 065
  5. RIBAVIRIN [Suspect]
     Dosage: DOSAGE FORM: UNSPECIFIED
     Route: 065
     Dates: start: 20130121
  6. PEGINTERFERON ALFA 2A [Concomitant]
     Indication: HEPATITIS C
     Dates: start: 20121127
  7. METHADONE [Concomitant]
     Route: 048
  8. METHADONE [Concomitant]
     Dosage: 120 MG, UNK
  9. VITAMIN B [Concomitant]
  10. PROPANOLOL HCL [Concomitant]
     Dosage: 40 MG, BID
  11. OMEPRAZOLE [Concomitant]
     Dosage: 20 MG, QD

REACTIONS (16)
  - Depression [Unknown]
  - Dyspnoea [Unknown]
  - Amnesia [Unknown]
  - Feeling abnormal [Unknown]
  - Influenza like illness [Unknown]
  - Decreased appetite [Unknown]
  - Fatigue [Unknown]
  - Mouth ulceration [Unknown]
  - Pain [Unknown]
  - Dry skin [Unknown]
  - Anaemia [Unknown]
  - Vomiting [Unknown]
  - Nausea [Unknown]
  - Treatment noncompliance [Unknown]
  - Haemorrhoids [Unknown]
  - Rash [Unknown]
